FAERS Safety Report 7668071-7 (Version None)
Quarter: 2011Q3

REPORT INFORMATION
  Report Type: 
  Country: None (occurrence: None)
  Receive Date: 20110803
  Receipt Date: 20110721
  Transmission Date: 20111222
  Serious: Yes (Death, Hospitalization)
  Sender: FDA-Public Use
  Company Number: UTC-008805

PATIENT
  Age: 68 Year
  Sex: Male

DRUGS (1)
  1. REMODULIN [Suspect]
     Dates: start: 20091015

REACTIONS (1)
  - HOSPITALISATION [None]
